FAERS Safety Report 9855793 (Version 2)
Quarter: 2014Q3

REPORT INFORMATION
  Report Type: Spontaneous
  Country: US (occurrence: US)
  Receive Date: 20140130
  Receipt Date: 20140901
  Transmission Date: 20150326
  Serious: Yes (Hospitalization, Other)
  Sender: FDA-Public Use
  Company Number: US-009507513-1401USA013593

PATIENT
  Sex: Female
  Weight: 83.9 kg

DRUGS (1)
  1. NUVARING [Suspect]
     Active Substance: ETHINYL ESTRADIOL\ETONOGESTREL
     Indication: CONTRACEPTION
     Dosage: REPLACE EVERY 3 WEEKS
     Route: 067
     Dates: start: 20051222, end: 20060219

REACTIONS (19)
  - Head injury [Unknown]
  - Device related infection [Unknown]
  - Anaemia [Unknown]
  - Phlebitis [Unknown]
  - Subdural haematoma [Unknown]
  - Intracranial venous sinus thrombosis [Unknown]
  - Systemic inflammatory response syndrome [Unknown]
  - VIth nerve paralysis [Unknown]
  - Subarachnoid haemorrhage [Unknown]
  - Viral infection [Unknown]
  - Hyponatraemia [Unknown]
  - Postpartum depression [Unknown]
  - Ventricular tachycardia [Unknown]
  - Staphylococcal sepsis [Unknown]
  - Blood product transfusion [Unknown]
  - Coagulopathy [Unknown]
  - Thrombectomy [Unknown]
  - Cardiac murmur [Unknown]
  - Haematochezia [Unknown]

NARRATIVE: CASE EVENT DATE: 200602
